FAERS Safety Report 5267198-7 (Version None)
Quarter: 2007Q1

REPORT INFORMATION
  Report Type: 
  Country: None (occurrence: None)
  Receive Date: 20070316
  Receipt Date: 20070306
  Transmission Date: 20070707
  Serious: Yes (Hospitalization)
  Sender: FDA-Public Use
  Company Number: FR-SANOFI-SYNTHELABO-A02200700687

PATIENT
  Age: 78 Year
  Sex: Male

DRUGS (20)
  1. ATHYMIL [Suspect]
     Indication: DRUG USE FOR UNKNOWN INDICATION
     Dosage: UNK
     Route: 048
     Dates: start: 20070119, end: 20070122
  2. RIVOTRIL [Suspect]
     Indication: DRUG USE FOR UNKNOWN INDICATION
     Dosage: UNK
     Route: 048
     Dates: start: 20070117, end: 20070122
  3. XATRAL [Suspect]
     Indication: DRUG USE FOR UNKNOWN INDICATION
     Dosage: UNK
     Route: 048
     Dates: start: 20070119, end: 20070124
  4. PROZAC [Concomitant]
     Dosage: UNK
     Route: 048
     Dates: end: 20070101
  5. RILMENIDINE [Concomitant]
     Dosage: UNK
     Route: 048
  6. MINISINTROM [Concomitant]
     Dosage: UNK
     Route: 048
  7. KETOPROFEN [Concomitant]
     Dosage: UNK
     Route: 061
     Dates: end: 20070101
  8. ACETAMINOPHEN AND TRAMADOL HCL [Concomitant]
     Dosage: UNK
     Route: 048
     Dates: end: 20070101
  9. CRESTOR [Concomitant]
     Dosage: UNK
     Route: 048
  10. QUINAPRIL HYDROCHLORIDE AND HYDROCHLOROTHIAZDE [Concomitant]
     Dosage: UNK
     Route: 048
  11. BUFLOMEDIL [Concomitant]
     Dosage: UNK
     Route: 048
  12. SPASFON [Concomitant]
     Dosage: UNK
     Route: 065
     Dates: start: 20070101
  13. SKENAN [Suspect]
     Indication: DRUG USE FOR UNKNOWN INDICATION
     Dosage: UNK
     Route: 048
     Dates: start: 20070117, end: 20070123
  14. FORLAX [Concomitant]
     Dosage: UNK
     Route: 048
     Dates: start: 20070101
  15. MULTIHANCE [Suspect]
     Indication: DRUG USE FOR UNKNOWN INDICATION
     Route: 042
     Dates: start: 20070122, end: 20070122
  16. TRAMADOL HCL [Concomitant]
     Dosage: UNK
     Route: 065
     Dates: end: 20070101
  17. PAROXETINE HCL [Suspect]
     Indication: DRUG USE FOR UNKNOWN INDICATION
     Dosage: UNK
     Route: 048
     Dates: start: 20070118, end: 20070122
  18. CO-APROVEL [Concomitant]
     Dosage: UNK
     Route: 048
  19. MONO-TILDIEM [Concomitant]
     Dosage: UNK
     Route: 048
  20. INIPOMP [Concomitant]
     Dosage: UNK
     Route: 065
     Dates: end: 20070101

REACTIONS (6)
  - BRADYPHRENIA [None]
  - DISORIENTATION [None]
  - MYOCLONUS [None]
  - RENAL FAILURE ACUTE [None]
  - THROMBOSIS [None]
  - VASCULAR GRAFT COMPLICATION [None]
